FAERS Safety Report 9242392 (Version 1)
Quarter: 2013Q2

REPORT INFORMATION
  Report Type: Spontaneous
  Country: PE (occurrence: PE)
  Receive Date: 20130419
  Receipt Date: 20130419
  Transmission Date: 20140414
  Serious: Yes (Death)
  Sender: FDA-Public Use
  Company Number: PE-PFIZER INC-2013120942

PATIENT
  Age: 71 Year
  Sex: Male

DRUGS (1)
  1. CARDURA XL [Suspect]

REACTIONS (1)
  - Death [Fatal]
